FAERS Safety Report 18303413 (Version 1)
Quarter: 2020Q3

REPORT INFORMATION
  Report Type: Spontaneous
  Country: IN (occurrence: IN)
  Receive Date: 20200923
  Receipt Date: 20200923
  Transmission Date: 20201103
  Serious: Yes (Hospitalization, Other)
  Sender: FDA-Public Use
  Company Number: IN-PFIZER INC-2020364048

PATIENT
  Age: 35 Year
  Sex: Female

DRUGS (2)
  1. CARBOPLATIN. [Suspect]
     Active Substance: CARBOPLATIN
     Dosage: UNK
  2. GEMCITABINE. [Suspect]
     Active Substance: GEMCITABINE
     Dosage: UNK

REACTIONS (6)
  - Pancytopenia [Unknown]
  - Gastrointestinal wall thickening [Unknown]
  - Haemorrhage [Unknown]
  - Dizziness [Unknown]
  - Intestinal mass [Unknown]
  - Gastrointestinal disorder [Unknown]
